FAERS Safety Report 7429512-3 (Version None)
Quarter: 2011Q2

REPORT INFORMATION
  Report Type: 
  Country: None (occurrence: None)
  Receive Date: 20110418
  Receipt Date: 20110418
  Transmission Date: 20111010
  Serious: Yes (Other)
  Sender: FDA-Public Use
  Company Number: None

PATIENT
  Age: 55 Year
  Sex: Female
  Weight: 65.7716 kg

DRUGS (1)
  1. CEFTIN [Suspect]
     Indication: SINUSITIS
     Dosage: 1 2X'S A DAY PO
     Route: 048
     Dates: start: 20110331, end: 20110415

REACTIONS (7)
  - VARICES OESOPHAGEAL [None]
  - PORTAL HYPERTENSION [None]
  - HAEMATOCHEZIA [None]
  - VULVOVAGINAL PRURITUS [None]
  - EPISTAXIS [None]
  - ABDOMINAL DISCOMFORT [None]
  - ORAL DISORDER [None]
